FAERS Safety Report 20552802 (Version 5)
Quarter: 2022Q2

REPORT INFORMATION
  Report Type: Spontaneous
  Country: US (occurrence: US)
  Receive Date: 20220304
  Receipt Date: 20220429
  Transmission Date: 20220720
  Serious: Yes (Death, Other)
  Sender: FDA-Public Use
  Company Number: US-009507513-2203USA001155

PATIENT
  Age: 72 Year
  Sex: Male
  Weight: 57.143 kg

DRUGS (1)
  1. KEYTRUDA [Suspect]
     Active Substance: PEMBROLIZUMAB
     Indication: Gastrointestinal carcinoma
     Dosage: 200 MILLIGRAM IV, Q3W
     Route: 042
     Dates: start: 20210630, end: 20220126

REACTIONS (4)
  - Malignant neoplasm progression [Fatal]
  - Cholangitis [Fatal]
  - Hospice care [Not Recovered/Not Resolved]
  - Product use in unapproved indication [Unknown]

NARRATIVE: CASE EVENT DATE: 20210630
